FAERS Safety Report 22076518 (Version 1)
Quarter: 2023Q1

REPORT INFORMATION
  Report Type: Report from Study
  Country: FR (occurrence: FR)
  Receive Date: 20230309
  Receipt Date: 20230309
  Transmission Date: 20230417
  Serious: Yes (Hospitalization)
  Sender: FDA-Public Use
  Company Number: FR-TAKEDA-FR201815988

PATIENT

DRUGS (24)
  1. TEDUGLUTIDE [Suspect]
     Active Substance: TEDUGLUTIDE
     Indication: Short-bowel syndrome
     Dosage: 0.05 MG/KG (TOTAL DAILY DOSE 3.6 MG), 7 DOSES PER WEEK
     Route: 042
     Dates: start: 20161004, end: 20161103
  2. TEDUGLUTIDE [Suspect]
     Active Substance: TEDUGLUTIDE
     Indication: Short-bowel syndrome
     Dosage: 0.05 MG/KG (TOTAL DAILY DOSE 3.6 MG), 7 DOSES PER WEEK
     Route: 042
     Dates: start: 20161004, end: 20161103
  3. TEDUGLUTIDE [Suspect]
     Active Substance: TEDUGLUTIDE
     Indication: Short-bowel syndrome
     Dosage: 0.05 MG/KG (TOTAL DAILY DOSE 3.6 MG), 7 DOSES PER WEEK
     Route: 042
     Dates: start: 20161004, end: 20161103
  4. TEDUGLUTIDE [Suspect]
     Active Substance: TEDUGLUTIDE
     Indication: Short-bowel syndrome
     Dosage: 0.05 MG/KG (TOTAL DAILY DOSE 3.6 MG), 7 DOSES PER WEEK
     Route: 042
     Dates: start: 20161004, end: 20161103
  5. TEDUGLUTIDE [Suspect]
     Active Substance: TEDUGLUTIDE
     Dosage: 0.05 MG/KG (TOTAL DAILY DOSE 3.8 MG), 7 DOSES PER WEEK
     Route: 042
     Dates: start: 20161104, end: 20161208
  6. TEDUGLUTIDE [Suspect]
     Active Substance: TEDUGLUTIDE
     Dosage: 0.05 MG/KG (TOTAL DAILY DOSE 3.8 MG), 7 DOSES PER WEEK
     Route: 042
     Dates: start: 20161104, end: 20161208
  7. TEDUGLUTIDE [Suspect]
     Active Substance: TEDUGLUTIDE
     Dosage: 0.05 MG/KG (TOTAL DAILY DOSE 3.8 MG), 7 DOSES PER WEEK
     Route: 042
     Dates: start: 20161104, end: 20161208
  8. TEDUGLUTIDE [Suspect]
     Active Substance: TEDUGLUTIDE
     Dosage: 0.05 MG/KG (TOTAL DAILY DOSE 3.8 MG), 7 DOSES PER WEEK
     Route: 042
     Dates: start: 20161104, end: 20161208
  9. TEDUGLUTIDE [Suspect]
     Active Substance: TEDUGLUTIDE
     Dosage: 0.05 MG/KG (TOTAL DAILY DOSE 3.6 MG), 7 DOSES PER WEEK
     Route: 042
     Dates: start: 20161209, end: 20170403
  10. TEDUGLUTIDE [Suspect]
     Active Substance: TEDUGLUTIDE
     Dosage: 0.05 MG/KG (TOTAL DAILY DOSE 3.6 MG), 7 DOSES PER WEEK
     Route: 042
     Dates: start: 20161209, end: 20170403
  11. TEDUGLUTIDE [Suspect]
     Active Substance: TEDUGLUTIDE
     Dosage: 0.05 MG/KG (TOTAL DAILY DOSE 3.6 MG), 7 DOSES PER WEEK
     Route: 042
     Dates: start: 20161209, end: 20170403
  12. TEDUGLUTIDE [Suspect]
     Active Substance: TEDUGLUTIDE
     Dosage: 0.05 MG/KG (TOTAL DAILY DOSE 3.6 MG), 7 DOSES PER WEEK
     Route: 042
     Dates: start: 20161209, end: 20170403
  13. TEDUGLUTIDE [Suspect]
     Active Substance: TEDUGLUTIDE
     Dosage: 0.05 MG/KG (TOTAL DAILY DOSE 3.4 MG), 7 DOSES PER WEEK
     Route: 042
     Dates: start: 20170404, end: 20180129
  14. TEDUGLUTIDE [Suspect]
     Active Substance: TEDUGLUTIDE
     Dosage: 0.05 MG/KG (TOTAL DAILY DOSE 3.4 MG), 7 DOSES PER WEEK
     Route: 042
     Dates: start: 20170404, end: 20180129
  15. TEDUGLUTIDE [Suspect]
     Active Substance: TEDUGLUTIDE
     Dosage: 0.05 MG/KG (TOTAL DAILY DOSE 3.4 MG), 7 DOSES PER WEEK
     Route: 042
     Dates: start: 20170404, end: 20180129
  16. TEDUGLUTIDE [Suspect]
     Active Substance: TEDUGLUTIDE
     Dosage: 0.05 MG/KG (TOTAL DAILY DOSE 3.4 MG), 7 DOSES PER WEEK
     Route: 042
     Dates: start: 20170404, end: 20180129
  17. TEDUGLUTIDE [Suspect]
     Active Substance: TEDUGLUTIDE
     Dosage: 0.05 MG/KG (TOTAL DAILY DOSE 3 MG), 7 DOSES PER WEEK
     Route: 042
     Dates: start: 20180130
  18. TEDUGLUTIDE [Suspect]
     Active Substance: TEDUGLUTIDE
     Dosage: 0.05 MG/KG (TOTAL DAILY DOSE 3 MG), 7 DOSES PER WEEK
     Route: 042
     Dates: start: 20180130
  19. TEDUGLUTIDE [Suspect]
     Active Substance: TEDUGLUTIDE
     Dosage: 0.05 MG/KG (TOTAL DAILY DOSE 3 MG), 7 DOSES PER WEEK
     Route: 042
     Dates: start: 20180130
  20. TEDUGLUTIDE [Suspect]
     Active Substance: TEDUGLUTIDE
     Dosage: 0.05 MG/KG (TOTAL DAILY DOSE 3 MG), 7 DOSES PER WEEK
     Route: 042
     Dates: start: 20180130
  21. LEVOTHYROXINE SODIUM [Concomitant]
     Active Substance: LEVOTHYROXINE SODIUM
     Indication: Hypothyroidism
     Route: 065
  22. AMOXICILLIN [Concomitant]
     Active Substance: AMOXICILLIN
     Indication: Pneumonia
     Route: 065
  23. AMIKACIN [Concomitant]
     Active Substance: AMIKACIN
     Indication: Vascular device infection
     Route: 065
  24. CEFTRIAXONE SODIUM [Concomitant]
     Active Substance: CEFTRIAXONE SODIUM
     Indication: Vascular device infection
     Route: 065

REACTIONS (1)
  - General physical health deterioration [Recovered/Resolved]

NARRATIVE: CASE EVENT DATE: 20180213
